FAERS Safety Report 8956346 (Version 2)
Quarter: 2014Q1

REPORT INFORMATION
  Report Type: Spontaneous
  Country: US (occurrence: US)
  Receive Date: 20121210
  Receipt Date: 20140113
  Transmission Date: 20141002
  Serious: No
  Sender: FDA-Public Use
  Company Number: US-PFIZER INC-2012310029

PATIENT
  Age: 79 Year
  Sex: Female
  Weight: 90.7 kg

DRUGS (6)
  1. LYRICA [Suspect]
     Indication: NEUROPATHY PERIPHERAL
     Dosage: 100 MG, 3X/DAY
  2. LYRICA [Suspect]
     Indication: PAIN
     Dosage: 200 MG, 3X/DAY
  3. LYRICA [Suspect]
     Dosage: UNK
  4. DILTIAZEM [Concomitant]
     Indication: HYPERTENSION
     Dosage: 90 MG, 3X/DAY
  5. PENTAZOCINE [Concomitant]
     Indication: BACK DISORDER
     Dosage: UNK, AS NEEDED
  6. PENTAZOCINE [Concomitant]
     Indication: NERVE INJURY

REACTIONS (1)
  - Drug ineffective [Unknown]
